FAERS Safety Report 7754692-X (Version None)
Quarter: 2011Q3

REPORT INFORMATION
  Report Type: 
  Country: None (occurrence: None)
  Receive Date: 20110915
  Receipt Date: 20110905
  Transmission Date: 20111222
  Serious: Yes (Death)
  Sender: FDA-Public Use
  Company Number: GB-GENENTECH-319218

PATIENT
  Sex: Female
  Weight: 54.1 kg

DRUGS (12)
  1. DIGOXIN [Concomitant]
     Indication: ATRIAL FIBRILLATION
     Dosage: UNK
     Dates: start: 19960920
  2. ASPIRIN [Concomitant]
     Indication: ATRIAL FIBRILLATION
  3. ALLOPURINOL [Concomitant]
     Indication: GOUT
     Dosage: UNK
     Dates: start: 20090921
  4. LUCENTIS [Suspect]
     Indication: AGE-RELATED MACULAR DEGENERATION
     Dosage: UNK DF, UNKNOWN
     Route: 031
     Dates: start: 20100127
  5. ACETAMINOPHEN [Concomitant]
     Indication: BACK PAIN
  6. LUCENTIS [Suspect]
     Dosage: 1 DF, UNK
     Route: 031
     Dates: start: 20100315
  7. FUROSEMIDE [Concomitant]
     Indication: BLOOD PRESSURE INCREASED
     Dosage: UNK
     Dates: start: 20080327
  8. OMEPRAZOLE [Concomitant]
     Indication: GASTRIC DISORDER
     Dosage: UNK
     Dates: start: 20100129
  9. LEVOTHYROXINE SODIUM [Concomitant]
     Indication: HYPOTHYROIDISM
     Dosage: UNK
     Dates: start: 20030408
  10. FUROSEMIDE [Concomitant]
     Indication: CARDIAC FAILURE
  11. SIMVASTATIN [Concomitant]
     Indication: BLOOD CHOLESTEROL
     Dosage: UNK
     Dates: start: 20060602
  12. ACETAMINOPHEN [Concomitant]
     Indication: OSTEOARTHRITIS

REACTIONS (4)
  - RENAL FAILURE [None]
  - GENERAL PHYSICAL HEALTH DETERIORATION [None]
  - LOWER RESPIRATORY TRACT INFECTION [None]
  - LEFT VENTRICULAR FAILURE [None]
